FAERS Safety Report 8294947-6 (Version None)
Quarter: 2012Q2

REPORT INFORMATION
  Report Type: 
  Country: None (occurrence: None)
  Receive Date: 20120418
  Receipt Date: 20120411
  Transmission Date: 20120825
  Serious: Yes (Hospitalization)
  Sender: FDA-Public Use
  Company Number: FI-NAPPMUNDI-GBR-2012-0009689

PATIENT
  Age: 86 Year
  Sex: Female

DRUGS (9)
  1. ACETAMINOPHEN [Concomitant]
     Dosage: 1 G, UNK
  2. HIPEKSAL [Concomitant]
     Dosage: 1 G, UNK
  3. SALATAN [Concomitant]
     Dosage: 50 MCG/ML, UNK
  4. LEVOLAC [Concomitant]
     Dosage: 20 ML, UNK
  5. NORSPAN 5 MCG/HR DEPOTLAASTARI [Suspect]
     Indication: PAIN
     Dosage: 5 MCG, Q1H
     Route: 062
     Dates: start: 20110715, end: 20110718
  6. BISOPROLOL FUMARATE [Concomitant]
     Dosage: 5 MG, BID
  7. FUROSEMIDE [Concomitant]
     Dosage: 40 MG, UNK
  8. ESCITALOPRAM [Concomitant]
     Indication: DEPRESSION
     Dosage: 5 MG, UNK
  9. EXELON [Concomitant]
     Dosage: 6 MG, UNK

REACTIONS (6)
  - APHASIA [None]
  - RESTLESSNESS [None]
  - UNRESPONSIVE TO STIMULI [None]
  - SOCIAL AVOIDANT BEHAVIOUR [None]
  - APNOEA [None]
  - DISORIENTATION [None]
